FAERS Safety Report 15098840 (Version 1)
Quarter: 2018Q3

REPORT INFORMATION
  Report Type: Spontaneous
  Country: US (occurrence: US)
  Receive Date: 20180702
  Receipt Date: 20180702
  Transmission Date: 20181010
  Serious: Yes (Hospitalization)
  Sender: FDA-Public Use
  Company Number: US-BEH-2018092249

PATIENT
  Sex: Female
  Weight: 64.85 kg

DRUGS (19)
  1. MAXZIDE [Concomitant]
     Active Substance: HYDROCHLOROTHIAZIDE\TRIAMTERENE
  2. LEXAPRO [Concomitant]
     Active Substance: ESCITALOPRAM OXALATE
  3. PREVACID [Concomitant]
     Active Substance: LANSOPRAZOLE
  4. HIZENTRA [Suspect]
     Active Substance: HUMAN IMMUNOGLOBULIN G
     Dosage: UNK
     Route: 058
  5. FORTEO [Concomitant]
     Active Substance: TERIPARATIDE
  6. FOSAMAX [Concomitant]
     Active Substance: ALENDRONATE SODIUM
  7. CYCLOBENZAPRINE. [Concomitant]
     Active Substance: CYCLOBENZAPRINE
  8. FOLIC ACID. [Concomitant]
     Active Substance: FOLIC ACID
  9. DIPHENHYDRAMINE. [Concomitant]
     Active Substance: DIPHENHYDRAMINE
  10. CEFDINIR. [Concomitant]
     Active Substance: CEFDINIR
  11. GABAPENTIN. [Concomitant]
     Active Substance: GABAPENTIN
  12. METHOTREXATE. [Concomitant]
     Active Substance: METHOTREXATE
  13. HIZENTRA [Suspect]
     Active Substance: HUMAN IMMUNOGLOBULIN G
     Indication: HYPOGAMMAGLOBULINAEMIA
     Dosage: 8 G, EVERY 2 WEEKS
     Route: 058
     Dates: start: 20170103
  14. EPINEPHRINE. [Concomitant]
     Active Substance: EPINEPHRINE
  15. LIDOCAINE/PRILOCAINE [Concomitant]
     Active Substance: LIDOCAINE\PRILOCAINE
  16. CELEBREX [Concomitant]
     Active Substance: CELECOXIB
  17. ZANTAC [Concomitant]
     Active Substance: RANITIDINE HYDROCHLORIDE
  18. ACETAMINOPHEN. [Concomitant]
     Active Substance: ACETAMINOPHEN
  19. RITUXAN [Concomitant]
     Active Substance: RITUXIMAB

REACTIONS (1)
  - Spinal cord drainage [Unknown]
